FAERS Safety Report 4480088-2 (Version None)
Quarter: 2004Q4

REPORT INFORMATION
  Report Type: 
  Country: None (occurrence: None)
  Receive Date: 20041018
  Receipt Date: 20041005
  Transmission Date: 20050328
  Serious: Yes (Hospitalization)
  Sender: FDA-Public Use
  Company Number: 2004039112

PATIENT
  Sex: Female
  Weight: 53.978 kg

DRUGS (9)
  1. NEURONTIN [Suspect]
     Indication: NEUROPATHY
     Dosage: 600 MG (200 MG, 3 IN 1 D)
  2. CELECOXIB (CELECOXIB) [Suspect]
     Indication: ARTHRITIS
     Dosage: 400 MCG (200 MCG, 2 IN 1 D), ORAL
     Route: 048
     Dates: start: 20000101, end: 20041004
  3. WARFARIN SODIUM [Concomitant]
  4. RABEPRAZOLE SODIUM [Concomitant]
  5. ULTRACET [Concomitant]
  6. ZOLPIDEM TARTRATE [Concomitant]
  7. CONJUGATED ESTROGENS [Concomitant]
  8. RABEPRAZOLE SODIUM [Concomitant]
  9. MONTELUKAST SODIUM (MONTELUKAST SODIUM) [Concomitant]

REACTIONS (17)
  - ABDOMINAL PAIN UPPER [None]
  - ACTIVATED PARTIAL THROMBOPLASTIN TIME PROLONGED [None]
  - ANTICOAGULATION DRUG LEVEL ABOVE THERAPEUTIC [None]
  - ANTICOAGULATION DRUG LEVEL BELOW THERAPEUTIC [None]
  - BRADYPHRENIA [None]
  - CARDIAC DISORDER [None]
  - CARPAL TUNNEL SYNDROME [None]
  - DIZZINESS [None]
  - FALL [None]
  - FATIGUE [None]
  - FEELING ABNORMAL [None]
  - GAIT DISTURBANCE [None]
  - GASTRIC HAEMORRHAGE [None]
  - HEAD INJURY [None]
  - HYPERSOMNIA [None]
  - RECTAL HAEMORRHAGE [None]
  - VAGINAL HAEMORRHAGE [None]
